FAERS Safety Report 25897388 (Version 3)
Quarter: 2025Q4

REPORT INFORMATION
  Report Type: Report from Study
  Country: CA (occurrence: CA)
  Receive Date: 20251008
  Receipt Date: 20251118
  Transmission Date: 20260117
  Serious: Yes (Hospitalization)
  Sender: PFIZER
  Company Number: CA-PFIZER INC-202500196778

PATIENT
  Age: 38 Year
  Sex: Male

DRUGS (2)
  1. ADALIMUMAB [Suspect]
     Active Substance: ADALIMUMAB
     Indication: Crohn^s disease
     Dosage: 40 MG 1 EVERY 2 WEEKS
  2. METHOTREXATE [Concomitant]
     Active Substance: METHOTREXATE
     Dosage: 0.6 ML, WEEKLY

REACTIONS (3)
  - Upper gastrointestinal haemorrhage [Unknown]
  - Device leakage [Unknown]
  - Incorrect dose administered [Unknown]
